FAERS Safety Report 16928321 (Version 1)
Quarter: 2019Q4

REPORT INFORMATION
  Report Type: Spontaneous
  Country: DE (occurrence: DE)
  Receive Date: 20191017
  Receipt Date: 20191017
  Transmission Date: 20200122
  Serious: Yes (Other)
  Sender: FDA-Public Use
  Company Number: DE-ACCORD-157924

PATIENT
  Age: 60 Year
  Sex: Female

DRUGS (5)
  1. RIBOCICLIB. [Suspect]
     Active Substance: RIBOCICLIB
     Indication: INVASIVE DUCTAL BREAST CARCINOMA
     Dosage: DAILY FOR 3 WEEKS WITHIN A 4-WEEK CYCLE
     Dates: start: 20180402, end: 2018
  2. RIBOCICLIB. [Suspect]
     Active Substance: RIBOCICLIB
     Indication: METASTASES TO LUNG
     Dosage: DAILY
     Dates: start: 2018
  3. RIBOCICLIB. [Suspect]
     Active Substance: RIBOCICLIB
     Indication: INVASIVE DUCTAL BREAST CARCINOMA
     Dosage: DAILY
     Dates: start: 2018
  4. LETROZOLE. [Suspect]
     Active Substance: LETROZOLE
     Indication: INVASIVE DUCTAL BREAST CARCINOMA
     Dates: start: 20180402
  5. LETROZOLE. [Suspect]
     Active Substance: LETROZOLE
     Indication: METASTASES TO LUNG
     Dates: start: 20180402

REACTIONS (3)
  - Arthralgia [Recovered/Resolved]
  - Myalgia [Recovered/Resolved]
  - Neutropenia [Recovered/Resolved]

NARRATIVE: CASE EVENT DATE: 2018
